FAERS Safety Report 14356859 (Version 1)
Quarter: 2018Q1

REPORT INFORMATION
  Report Type: Spontaneous
  Country: DE (occurrence: DE)
  Receive Date: 20180105
  Receipt Date: 20180105
  Transmission Date: 20180509
  Serious: Yes (Hospitalization, Other)
  Sender: FDA-Public Use
  Company Number: DE-TEVA-2018-DE-842887

PATIENT
  Age: 35 Year
  Sex: Female

DRUGS (8)
  1. LEVOMETHADONE [Concomitant]
     Active Substance: LEVOMETHADONE
     Dosage: 14 ML DAILY;
     Route: 065
  2. OXAZEPAM. [Concomitant]
     Active Substance: OXAZEPAM
     Indication: DRUG WITHDRAWAL MAINTENANCE THERAPY
     Dosage: 100 MILLIGRAM DAILY;
     Route: 065
  3. LEVETIRACETAM. [Concomitant]
     Active Substance: LEVETIRACETAM
     Indication: DRUG WITHDRAWAL MAINTENANCE THERAPY
     Dosage: 2000 MG
     Route: 065
  4. CLONIDINE. [Concomitant]
     Active Substance: CLONIDINE
     Indication: DRUG WITHDRAWAL MAINTENANCE THERAPY
     Route: 065
  5. DIAZEPAM. [Suspect]
     Active Substance: DIAZEPAM
     Indication: PRODUCT USED FOR UNKNOWN INDICATION
     Dosage: 30 MG
     Route: 065
  6. BUPROPION. [Suspect]
     Active Substance: BUPROPION
     Indication: DRUG ABUSE
     Dosage: 600 MG EACH TIME FOR A TOTAL OF 25 TIMES
     Route: 042
  7. LEVOMETHADONE [Concomitant]
     Active Substance: LEVOMETHADONE
     Dosage: 8 ML DAILY;
     Route: 065
  8. PIRITRAMIDE [Suspect]
     Active Substance: PIRITRAMIDE
     Indication: PAIN
     Route: 065

REACTIONS (11)
  - Chills [Unknown]
  - Tremor [Unknown]
  - Withdrawal syndrome [Unknown]
  - Osteomyelitis [Unknown]
  - Akathisia [Unknown]
  - Injection site abscess [Recovered/Resolved]
  - Drug abuse [Unknown]
  - Dyspnoea [Unknown]
  - Drug withdrawal convulsions [Recovered/Resolved]
  - Generalised tonic-clonic seizure [Recovered/Resolved]
  - Drug dependence [Unknown]
